FAERS Safety Report 9857948 (Version 1)
Quarter: 2014Q1

REPORT INFORMATION
  Report Type: Spontaneous
  Country: US (occurrence: US)
  Receive Date: 20140131
  Receipt Date: 20140131
  Transmission Date: 20141002
  Serious: No
  Sender: FDA-Public Use
  Company Number: US-PFIZER INC-2014027042

PATIENT
  Age: 82 Year
  Sex: Female
  Weight: 62.59 kg

DRUGS (2)
  1. DIPHENOXYLATE HYDROCHLORIDE AND ATROPINE SULFATE [Suspect]
     Indication: IRRITABLE BOWEL SYNDROME
     Dosage: UNK, EVERY 8 HOURS
     Dates: start: 201401
  2. CLONIDINE [Concomitant]
     Indication: HYPERTENSION
     Dosage: UNK
     Route: 062

REACTIONS (1)
  - Dyspepsia [Unknown]
